FAERS Safety Report 9302820 (Version 1)
Quarter: 2013Q2

REPORT INFORMATION
  Report Type: Spontaneous
  Country: US (occurrence: US)
  Receive Date: 20130522
  Receipt Date: 20130522
  Transmission Date: 20140414
  Serious: No
  Sender: FDA-Public Use
  Company Number: US-BAYER-2013-062649

PATIENT
  Age: 56 Year
  Sex: Female

DRUGS (10)
  1. BETASERON [Suspect]
     Indication: MULTIPLE SCLEROSIS
     Dosage: UNK
     Dates: start: 1994, end: 201210
  2. ADVIL [Concomitant]
  3. AMLODIPINE [Concomitant]
  4. ESTROGEN [Concomitant]
  5. FLEXERIL [Concomitant]
  6. HYDROXYZINE [Concomitant]
  7. LISINOPRIL [Concomitant]
  8. PROVIGIL [Concomitant]
  9. SONATA [Concomitant]
  10. TYLENOL [PARACETAMOL] [Concomitant]

REACTIONS (1)
  - White blood cell count decreased [None]
